FAERS Safety Report 5310130-8 (Version None)
Quarter: 2007Q2

REPORT INFORMATION
  Report Type: 
  Country: None (occurrence: None)
  Receive Date: 20070427
  Receipt Date: 20070425
  Transmission Date: 20071010
  Serious: Yes (Hospitalization)
  Sender: FDA-Public Use
  Company Number: US-GLAXOSMITHKLINE-A0648504A

PATIENT
  Age: 34 Year
  Sex: Female

DRUGS (1)
  1. TUMS REGULAR TABLETS, ASSORTED FRUIT [Suspect]
     Indication: DYSPEPSIA
     Dosage: 2TAB SINGLE DOSE
     Route: 048
     Dates: start: 20070424, end: 20070424

REACTIONS (2)
  - CHEST PAIN [None]
  - PAIN [None]
